FAERS Safety Report 7621380-X (Version None)
Quarter: 2011Q3

REPORT INFORMATION
  Report Type: 
  Country: None (occurrence: None)
  Receive Date: 20110719
  Receipt Date: 20110714
  Transmission Date: 20111222
  Serious: Yes (Other)
  Sender: FDA-Public Use
  Company Number: US-PFIZER INC-2011082186

PATIENT
  Sex: Female

DRUGS (9)
  1. LORAZEPAM [Concomitant]
     Indication: ANXIETY
     Dosage: UNK
     Dates: start: 20070101
  2. PAROXETINE [Concomitant]
     Indication: DEPRESSION
  3. CHANTIX [Suspect]
     Indication: SMOKING CESSATION THERAPY
     Dosage: STARTER PACK AND 1MG CONTINUING PACKS
     Dates: start: 20070803, end: 20100101
  4. PAROXETINE [Concomitant]
     Indication: ANXIETY
     Dosage: UNK
     Dates: start: 20080101
  5. SULFAMETHOXAZOLE AND TRIMETHOPRIM [Concomitant]
     Indication: BACTERIAL INFECTION
     Dosage: UNK
     Dates: start: 20060101, end: 20100101
  6. MELOXICAM [Concomitant]
     Indication: PAIN
     Dosage: UNK
     Dates: start: 20070101, end: 20100101
  7. ZOLPIDEM [Concomitant]
     Indication: INSOMNIA
     Dosage: UNK
     Dates: start: 20060101
  8. HYDROCODONE [Concomitant]
     Indication: PAIN
     Dosage: UNK
     Dates: start: 20060101, end: 20100101
  9. TIZANIDINE [Concomitant]
     Indication: MUSCLE SPASMS
     Dosage: UNK
     Dates: start: 20080101, end: 20100101

REACTIONS (7)
  - INSOMNIA [None]
  - AGGRESSION [None]
  - SUICIDAL IDEATION [None]
  - COGNITIVE DISORDER [None]
  - DEPRESSION [None]
  - ANXIETY [None]
  - POST-TRAUMATIC STRESS DISORDER [None]
